FAERS Safety Report 13838256 (Version 4)
Quarter: 2019Q2

REPORT INFORMATION
  Report Type: Report from Study
  Country: ES (occurrence: ES)
  Receive Date: 20170807
  Receipt Date: 20190401
  Transmission Date: 20190711
  Serious: Yes (Hospitalization, Other)
  Sender: FDA-Public Use
  Company Number: ES-BRISTOL-MYERS SQUIBB COMPANY-BMS-2017-008041

PATIENT
  Age: 78 Year
  Sex: Female

DRUGS (1)
  1. ABATACEPT [Suspect]
     Active Substance: ABATACEPT
     Indication: RHEUMATOID ARTHRITIS
     Dosage: 125 MG, QWK
     Route: 058
     Dates: start: 20151214, end: 20161105

REACTIONS (10)
  - Polyneuropathy [Recovering/Resolving]
  - Hip fracture [Unknown]
  - Respiratory tract infection [Recovered/Resolved]
  - General physical health deterioration [Recovered/Resolved]
  - Arthralgia [Recovered/Resolved]
  - Renal failure [Unknown]
  - General symptom [Unknown]
  - Lung consolidation [Recovered/Resolved]
  - Pyrexia [Recovered/Resolved]
  - Autoimmune hepatitis [Recovering/Resolving]

NARRATIVE: CASE EVENT DATE: 20161105
